FAERS Safety Report 6671382-5 (Version None)
Quarter: 2010Q2

REPORT INFORMATION
  Report Type: 
  Country: None (occurrence: None)
  Receive Date: 20100407
  Receipt Date: 20100401
  Transmission Date: 20101027
  Serious: Yes (Life-Threatening, Hospitalization)
  Sender: FDA-Public Use
  Company Number: B0578479A

PATIENT
  Sex: Female

DRUGS (1)
  1. LAMICTAL CD [Suspect]
     Indication: DRUG DISPENSING ERROR
     Dosage: 100MG PER DAY
     Route: 048
     Dates: start: 20090427, end: 20090514

REACTIONS (27)
  - ANAEMIA [None]
  - DERMATITIS BULLOUS [None]
  - DRUG DISPENSING ERROR [None]
  - DRUG NAME CONFUSION [None]
  - DYSPHAGIA [None]
  - ERYTHEMA [None]
  - EYE DISORDER [None]
  - FACE OEDEMA [None]
  - HEPATOCELLULAR INJURY [None]
  - INFLAMMATION [None]
  - LUNG INFECTION [None]
  - LYMPHADENOPATHY [None]
  - MALAISE [None]
  - MOUTH HAEMORRHAGE [None]
  - MUCOSAL EROSION [None]
  - NIKOLSKY'S SIGN [None]
  - OROPHARYNGEAL PAIN [None]
  - PAIN [None]
  - POST INFLAMMATORY PIGMENTATION CHANGE [None]
  - PYREXIA [None]
  - RASH MACULO-PAPULAR [None]
  - RASH PAPULAR [None]
  - RASH VESICULAR [None]
  - SKIN EXFOLIATION [None]
  - TACHYCARDIA [None]
  - TOXIC EPIDERMAL NECROLYSIS [None]
  - URINARY TRACT INFECTION [None]
